FAERS Safety Report 24229938 (Version 2)
Quarter: 2025Q1

REPORT INFORMATION
  Report Type: Spontaneous
  Country: ES (occurrence: ES)
  Receive Date: 20240820
  Receipt Date: 20250313
  Transmission Date: 20250409
  Serious: Yes (Hospitalization, Other)
  Sender: FRESENIUS KABI
  Company Number: None

PATIENT
  Age: 60 Year
  Sex: Male

DRUGS (1)
  1. PROPOFOL [Suspect]
     Active Substance: PROPOFOL
     Indication: Light anaesthesia
     Route: 042
     Dates: start: 20240724, end: 20240724

REACTIONS (3)
  - Septic shock [Recovered/Resolved]
  - Sepsis [Recovered/Resolved]
  - Product contamination microbial [Unknown]

NARRATIVE: CASE EVENT DATE: 20240724
